FAERS Safety Report 8041357-2 (Version None)
Quarter: 2012Q1

REPORT INFORMATION
  Report Type: 
  Country: None (occurrence: None)
  Receive Date: 20120112
  Receipt Date: 20120106
  Transmission Date: 20120608
  Serious: Yes (Other)
  Sender: FDA-Public Use
  Company Number: US-PFIZER INC-2012005724

PATIENT
  Sex: Female

DRUGS (1)
  1. PRISTIQ [Suspect]
     Dosage: UNK

REACTIONS (5)
  - CONVULSION [None]
  - ASTHENIA [None]
  - PYREXIA [None]
  - WITHDRAWAL SYNDROME [None]
  - MYALGIA [None]
